FAERS Safety Report 17441943 (Version 1)
Quarter: 2020Q1

REPORT INFORMATION
  Report Type: Spontaneous
  Country: US (occurrence: US)
  Receive Date: 20200220
  Receipt Date: 20200220
  Transmission Date: 20200409
  Serious: Yes (Other)
  Sender: FDA-Public Use
  Company Number: US-ELI_LILLY_AND_COMPANY-US202002003736

PATIENT
  Age: 76 Year
  Sex: Female

DRUGS (2)
  1. HUMALOG [Suspect]
     Active Substance: INSULIN LISPRO
     Indication: TYPE 2 DIABETES MELLITUS
     Dosage: 42 U, UNKNOWN
     Route: 058
     Dates: start: 2013
  2. HUMALOG [Suspect]
     Active Substance: INSULIN LISPRO
     Dosage: 42 U, UNKNOWN
     Route: 058

REACTIONS (7)
  - Hand fracture [Unknown]
  - Emotional disorder [Unknown]
  - Cataract [Unknown]
  - Fall [Unknown]
  - Neuropathy peripheral [Unknown]
  - Glaucoma [Unknown]
  - Balance disorder [Unknown]
